FAERS Safety Report 12012407 (Version 1)
Quarter: 2016Q1

REPORT INFORMATION
  Report Type: Spontaneous
  Country: GB (occurrence: GB)
  Receive Date: 20160205
  Receipt Date: 20160205
  Transmission Date: 20160526
  Serious: Yes (Hospitalization)
  Sender: FDA-Public Use
  Company Number: GB-ABBVIE-16K-167-1549985-00

PATIENT
  Age: 24 Year
  Sex: Female

DRUGS (1)
  1. HUMIRA [Suspect]
     Active Substance: ADALIMUMAB
     Indication: PSORIASIS
     Route: 058
     Dates: start: 20150513, end: 201510

REACTIONS (5)
  - Malaise [Recovering/Resolving]
  - Psoriasis [Unknown]
  - Malaise [Unknown]
  - Psoriasis [Recovering/Resolving]
  - Erythrodermic psoriasis [Unknown]

NARRATIVE: CASE EVENT DATE: 20151101
